FAERS Safety Report 21671367 (Version 2)
Quarter: 2022Q4

REPORT INFORMATION
  Report Type: Spontaneous
  Country: US (occurrence: US)
  Receive Date: 20221202
  Receipt Date: 20221214
  Transmission Date: 20230113
  Serious: No
  Sender: FDA-Public Use
  Company Number: US-UNITED THERAPEUTICS-UNT-2022-028971

PATIENT
  Sex: Female
  Weight: 53.968 kg

DRUGS (5)
  1. REMODULIN [Suspect]
     Active Substance: TREPROSTINIL
     Indication: Pulmonary arterial hypertension
     Dosage: UNK, CONTINUING
     Route: 058
     Dates: start: 20221028
  2. REMODULIN [Suspect]
     Active Substance: TREPROSTINIL
     Dosage: 0.01375 ?G/KG (PHARMACY PRE-FILLED WITH 2.2ML PER CASSETTE; AT A PUMP RATE OF 18 MCL/HOUR), CONTINUI
     Route: 058
     Dates: start: 2022
  3. REMODULIN [Suspect]
     Active Substance: TREPROSTINIL
     Dosage: 0.01575 ?G/KG (PHARMACY PRE-FILLED WITH 2.2ML PER CASSETTE; AT A PUMP RATE OF 21 MCL/HOUR), CONTINUI
     Route: 058
     Dates: start: 2022
  4. REMODULIN [Suspect]
     Active Substance: TREPROSTINIL
     Indication: Pulmonary arterial hypertension
     Dosage: UNK, CONTINUING
     Route: 058
     Dates: start: 202211
  5. ADEMPAS [Concomitant]
     Active Substance: RIOCIGUAT
     Indication: Product used for unknown indication
     Dosage: UNK
     Route: 065

REACTIONS (5)
  - Infusion site erythema [Unknown]
  - Device failure [Recovered/Resolved]
  - Device leakage [Unknown]
  - Device dislocation [Recovered/Resolved]
  - Infusion site pain [Recovered/Resolved]

NARRATIVE: CASE EVENT DATE: 20220101
